FAERS Safety Report 6741991-3 (Version None)
Quarter: 2010Q2

REPORT INFORMATION
  Report Type: 
  Country: None (occurrence: None)
  Receive Date: 20100526
  Receipt Date: 20100517
  Transmission Date: 20101027
  Serious: Yes (Other)
  Sender: FDA-Public Use
  Company Number: FR-ASTRAZENECA-2010SE22679

PATIENT
  Age: 480 Month
  Sex: Female

DRUGS (7)
  1. ARIMIDEX [Suspect]
     Indication: BREAST CANCER
     Route: 048
     Dates: start: 20090901, end: 20100303
  2. CORTANCYL [Concomitant]
     Dates: end: 20100201
  3. CLAMOXYL [Concomitant]
     Dates: start: 20060101
  4. BACTRIM [Concomitant]
     Dates: start: 20060101
  5. AMITRIPTYLINE HCL [Concomitant]
  6. ZOLPIDEM [Concomitant]
  7. ZOMETA [Concomitant]

REACTIONS (1)
  - RASH MACULO-PAPULAR [None]
